FAERS Safety Report 4840070-X (Version None)
Quarter: 2005Q4

REPORT INFORMATION
  Report Type: 
  Country: None (occurrence: None)
  Receive Date: 20051125
  Receipt Date: 20051111
  Transmission Date: 20060501
  Serious: Yes (Disabling)
  Sender: FDA-Public Use
  Company Number: 05H-167-0303617-00

PATIENT
  Age: 73 Year
  Sex: Male

DRUGS (7)
  1. PENTOTHAL [Suspect]
     Indication: INDUCTION OF ANAESTHESIA
  2. MORPHINE [Suspect]
     Indication: ANAESTHESIA
  3. OMNOPON                       (OPIUM ALKALOIDS TOTAL) [Suspect]
     Indication: ANAESTHESIA
  4. HYOSCINE HBR HYT [Suspect]
     Indication: ANAESTHESIA
  5. ATROPINE [Suspect]
     Indication: ANAESTHESIA
  6. TRICHLOROETHYLENE             (TRICHLOROETHYLENE) [Suspect]
     Indication: ANAESTHESIA
  7. OXYGEN               (OXYGEN) [Suspect]
     Indication: ANAESTHESIA

REACTIONS (6)
  - APALLIC SYNDROME [None]
  - DEMENTIA [None]
  - FAECAL INCONTINENCE [None]
  - MOVEMENT DISORDER [None]
  - SPEECH DISORDER [None]
  - URINARY INCONTINENCE [None]
